FAERS Safety Report 9509270 (Version 1)
Quarter: 2013Q3

REPORT INFORMATION
  Report Type: Spontaneous
  Country: GB (occurrence: GB)
  Receive Date: 20130909
  Receipt Date: 20130909
  Transmission Date: 20140515
  Serious: Yes (Hospitalization, Other)
  Sender: FDA-Public Use
  Company Number: GB-TEVA-429989ISR

PATIENT
  Age: 41 Year
  Sex: Female

DRUGS (3)
  1. CIPROFLOXACIN [Suspect]
     Indication: LOWER RESPIRATORY TRACT INFECTION
     Route: 048
     Dates: start: 20120928, end: 20121002
  2. OMEPRAZOLE [Concomitant]
  3. EVOREL [Concomitant]
     Dosage: TWO A WEEK

REACTIONS (8)
  - Treatment failure [Recovered/Resolved]
  - Chest pain [Unknown]
  - Cough [Unknown]
  - Cyanosis [Unknown]
  - Lung consolidation [Unknown]
  - Pyrexia [Unknown]
  - Dyspnoea [Unknown]
  - Productive cough [Unknown]
